FAERS Safety Report 25961429 (Version 1)
Quarter: 2025Q4

REPORT INFORMATION
  Report Type: Spontaneous
  Country: NP (occurrence: NP)
  Receive Date: 20251027
  Receipt Date: 20251027
  Transmission Date: 20260118
  Serious: Yes (Hospitalization)
  Sender: ACCORD
  Company Number: NP-Accord-509955

PATIENT
  Age: 65 Year
  Sex: Female

DRUGS (5)
  1. METHOTREXATE [Suspect]
     Active Substance: METHOTREXATE
     Indication: Rheumatoid arthritis
     Dosage: PRESCRIBED MTX 7.5 MG TWICE WEEKLY
  2. FOLIC ACID [Concomitant]
     Active Substance: FOLIC ACID
     Indication: Rheumatoid arthritis
  3. ETORICOXIB [Concomitant]
     Active Substance: ETORICOXIB
     Indication: Analgesic therapy
  4. LEFLUNOMIDE [Concomitant]
     Active Substance: LEFLUNOMIDE
     Indication: Rheumatoid arthritis
  5. ETORICOXIB [Concomitant]
     Active Substance: ETORICOXIB
     Indication: Osteoarthritis

REACTIONS (7)
  - Myelosuppression [Recovering/Resolving]
  - Febrile neutropenia [Recovering/Resolving]
  - Inappropriate schedule of product administration [Unknown]
  - Accidental overdose [Unknown]
  - Gastrointestinal haemorrhage [Recovering/Resolving]
  - Hepatic function abnormal [Recovering/Resolving]
  - Mucosal inflammation [Recovering/Resolving]
